FAERS Safety Report 4717787-0 (Version None)
Quarter: 2005Q3

REPORT INFORMATION
  Report Type: 
  Country: None (occurrence: None)
  Receive Date: 20050715
  Receipt Date: 20040910
  Transmission Date: 20060218
  Serious: Yes (Death)
  Sender: FDA-Public Use
  Company Number: 2004-00516

PATIENT
  Age: 66 Year
  Sex: Female

DRUGS (4)
  1. INTEGRILIN [Suspect]
     Indication: ACUTE CORONARY SYNDROME
     Dosage: SEE IMAGE
     Route: 040
     Dates: start: 20040910, end: 20040910
  2. . [Concomitant]
  3. ASPIRIN [Concomitant]
  4. HEPARIN [Concomitant]

REACTIONS (1)
  - HAEMORRHAGE INTRACRANIAL [None]
